FAERS Safety Report 6480456-3 (Version None)
Quarter: 2009Q4

REPORT INFORMATION
  Report Type: 
  Country: None (occurrence: None)
  Receive Date: 20091203
  Receipt Date: 20091120
  Transmission Date: 20100525
  Serious: Yes (Hospitalization, Disabling)
  Sender: FDA-Public Use
  Company Number: 1-20794464

PATIENT
  Sex: Female

DRUGS (2)
  1. SOLODYN [Suspect]
     Indication: ACNE
     Dosage: 90 MG DAILY, ORAL
     Route: 048
     Dates: start: 20090901, end: 20091117
  2. CELEXA [Concomitant]

REACTIONS (6)
  - BENIGN INTRACRANIAL HYPERTENSION [None]
  - EYE SWELLING [None]
  - HEADACHE [None]
  - MIGRAINE [None]
  - PAPILLOEDEMA [None]
  - VISUAL ACUITY REDUCED [None]
